FAERS Safety Report 18925646 (Version 3)
Quarter: 2021Q2

REPORT INFORMATION
  Report Type: Report from Study
  Country: JP (occurrence: JP)
  Receive Date: 20210222
  Receipt Date: 20210625
  Transmission Date: 20210717
  Serious: Yes (Hospitalization, Disabling)
  Sender: FDA-Public Use
  Company Number: JP-BIOGEN-2020BI00857211

PATIENT
  Age: 40 Year
  Sex: Female
  Weight: 47.6 kg

DRUGS (3)
  1. FERROMIA [Concomitant]
     Active Substance: SODIUM FERROUS CITRATE
     Indication: PROPHYLAXIS
     Route: 048
  2. TECFIDERA [Suspect]
     Active Substance: DIMETHYL FUMARATE
     Indication: RELAPSING-REMITTING MULTIPLE SCLEROSIS
     Route: 048
     Dates: start: 20190123, end: 20190130
  3. TECFIDERA [Suspect]
     Active Substance: DIMETHYL FUMARATE
     Route: 048
     Dates: start: 20190130

REACTIONS (6)
  - Lymphocyte count decreased [Recovered/Resolved]
  - White blood cell count decreased [Unknown]
  - COVID-19 [Recovered/Resolved with Sequelae]
  - Alanine aminotransferase increased [Recovered/Resolved]
  - Aspartate aminotransferase increased [Recovered/Resolved]
  - Flushing [Not Recovered/Not Resolved]

NARRATIVE: CASE EVENT DATE: 20190306
